FAERS Safety Report 23100788 (Version 1)
Quarter: 2023Q4

REPORT INFORMATION
  Report Type: Spontaneous
  Country: US (occurrence: None)
  Receive Date: 20231021
  Receipt Date: 20231021
  Transmission Date: 20240109
  Serious: Yes (Hospitalization)
  Sender: FDA-Public Use
  Company Number: None

PATIENT
  Age: 63 Year
  Sex: Male
  Weight: 86 kg

DRUGS (2)
  1. DAPTOMYCIN [Suspect]
     Active Substance: DAPTOMYCIN
     Dosage: FREQUENCY : DAILY;?
     Route: 042
     Dates: start: 20220830, end: 20220912
  2. CEFEPIME [Concomitant]
     Active Substance: CEFEPIME HYDROCHLORIDE
     Dates: end: 20220912

REACTIONS (2)
  - Hypersensitivity pneumonitis [None]
  - Therapy cessation [None]

NARRATIVE: CASE EVENT DATE: 20221011
